FAERS Safety Report 17234543 (Version 1)
Quarter: 2020Q1

REPORT INFORMATION
  Report Type: Spontaneous
  Country: US (occurrence: US)
  Receive Date: 20200106
  Receipt Date: 20200106
  Transmission Date: 20200409
  Serious: No
  Sender: FDA-Public Use
  Company Number: US-UCBSA-2014019589

PATIENT
  Sex: Female

DRUGS (9)
  1. KEPPRA [Concomitant]
     Active Substance: LEVETIRACETAM
     Indication: SEIZURE
  2. PREDNISONE. [Concomitant]
     Active Substance: PREDNISONE
     Indication: RHEUMATOID ARTHRITIS
  3. MYFORTIC [Concomitant]
     Active Substance: MYCOPHENOLATE SODIUM
     Indication: PROPHYLAXIS AGAINST TRANSPLANT REJECTION
  4. TOPIRAMATE. [Concomitant]
     Active Substance: TOPIRAMATE
     Indication: SEIZURE
  5. CIMZIA [Suspect]
     Active Substance: CERTOLIZUMAB PEGOL
     Indication: RHEUMATOID ARTHRITIS
     Dosage: UNK
  6. SERTRALINE [Concomitant]
     Active Substance: SERTRALINE HYDROCHLORIDE
     Indication: DEPRESSION
  7. SIMVASTATIN. [Concomitant]
     Active Substance: SIMVASTATIN
     Indication: PRODUCT USED FOR UNKNOWN INDICATION
  8. PROGRAF [Concomitant]
     Active Substance: TACROLIMUS
     Indication: PROPHYLAXIS AGAINST TRANSPLANT REJECTION
     Dosage: UNK
  9. LEVOTHYROXINE. [Concomitant]
     Active Substance: LEVOTHYROXINE
     Indication: PRODUCT USED FOR UNKNOWN INDICATION

REACTIONS (2)
  - Fractured coccyx [Not Recovered/Not Resolved]
  - Fractured sacrum [Not Recovered/Not Resolved]

NARRATIVE: CASE EVENT DATE: 201410
